FAERS Safety Report 7909139-7 (Version None)
Quarter: 2011Q4

REPORT INFORMATION
  Report Type: 
  Country: None (occurrence: None)
  Receive Date: 20111111
  Receipt Date: 20101116
  Transmission Date: 20120403
  Serious: No
  Sender: FDA-Public Use
  Company Number: US-GLAXOSMITHKLINE-A0892842A

PATIENT
  Age: 67 Year
  Sex: Male

DRUGS (3)
  1. LIPITOR [Concomitant]
  2. COREG [Suspect]
     Indication: STENT PLACEMENT
     Dosage: 2TAB TWICE PER DAY
     Route: 048
     Dates: start: 20090101
  3. PLAVIX [Concomitant]

REACTIONS (1)
  - POLLAKIURIA [None]
